FAERS Safety Report 16896570 (Version 1)
Quarter: 2019Q4

REPORT INFORMATION
  Report Type: Report from Study
  Country: US (occurrence: US)
  Receive Date: 20191008
  Receipt Date: 20191008
  Transmission Date: 20200122
  Serious: No
  Sender: FDA-Public Use
  Company Number: US-EMD SERONO-9109285

PATIENT
  Age: 65 Year
  Sex: Female

DRUGS (1)
  1. MAVENCLAD [Suspect]
     Active Substance: CLADRIBINE
     Indication: MULTIPLE SCLEROSIS
     Dosage: FIRST CYCLE: TWO TABLETS PER DAY FOR 5 DAYS
     Route: 048
     Dates: start: 20190724

REACTIONS (4)
  - White blood cell count decreased [Unknown]
  - Upper respiratory tract infection [Unknown]
  - Blood iron decreased [Unknown]
  - Skin lesion [Unknown]

NARRATIVE: CASE EVENT DATE: 201907
